FAERS Safety Report 13773170 (Version 1)
Quarter: 2017Q3

REPORT INFORMATION
  Report Type: Spontaneous
  Country: US (occurrence: US)
  Receive Date: 20170720
  Receipt Date: 20170720
  Transmission Date: 20171127
  Serious: Yes (Other)
  Sender: FDA-Public Use
  Company Number: US-BIOGEN-2017BI00432742

PATIENT
  Age: 28 Year
  Sex: Female

DRUGS (5)
  1. DUEXIS [Concomitant]
     Active Substance: FAMOTIDINE\IBUPROFEN
     Indication: MIGRAINE
     Route: 048
  2. TYSABRI [Suspect]
     Active Substance: NATALIZUMAB
     Indication: MULTIPLE SCLEROSIS
     Route: 042
     Dates: start: 20160407
  3. NUVIGIL [Concomitant]
     Active Substance: ARMODAFINIL
     Indication: FATIGUE
     Route: 065
  4. NUVIGIL [Concomitant]
     Active Substance: ARMODAFINIL
     Indication: INSOMNIA
  5. XANAX [Concomitant]
     Active Substance: ALPRAZOLAM
     Indication: ANXIETY
     Route: 048

REACTIONS (1)
  - Major depression [Not Recovered/Not Resolved]

NARRATIVE: CASE EVENT DATE: 20170123
